FAERS Safety Report 8937243 (Version 1)
Quarter: 2012Q4

REPORT INFORMATION
  Report Type: 
  Country: JP (occurrence: JP)
  Receive Date: 20121203
  Receipt Date: 20121203
  Transmission Date: 20130627
  Serious: Yes (Other)
  Sender: FDA-Public Use
  Company Number: PHHY2012JP109995

PATIENT
  Age: 72 Year
  Sex: Female

DRUGS (1)
  1. RIVASTIGMIN [Suspect]
     Indication: DEMENTIA ALZHEIMER^S TYPE
     Dosage: 9.5 mg/10 cm2, daily
     Route: 062
     Dates: start: 20120123, end: 20121120

REACTIONS (1)
  - Blood cholinesterase decreased [Unknown]
